FAERS Safety Report 5094507-4 (Version None)
Quarter: 2006Q3

REPORT INFORMATION
  Report Type: 
  Country: None (occurrence: None)
  Receive Date: 20060830
  Receipt Date: 20060823
  Transmission Date: 20061208
  Serious: Yes (Life-Threatening, Other)
  Sender: FDA-Public Use
  Company Number: 228743

PATIENT
  Age: 69 Year
  Sex: Female

DRUGS (5)
  1. AVASTIN [Suspect]
     Indication: COLORECTAL CANCER METASTATIC
     Dosage: 400 MG, Q2W, INTRAVENOUS
     Route: 042
     Dates: start: 20060426
  2. OXALIPLATIN (OXALIPLATIN) [Concomitant]
  3. OXYGEN AT HOME (OXYGEN) [Concomitant]
  4. NEBULIZER TREATMENT (RESPIRATORY TREATMENTS AND DEVICES) [Concomitant]
  5. BENADRYL [Concomitant]

REACTIONS (4)
  - BRONCHIAL OBSTRUCTION [None]
  - COUGH [None]
  - DYSPNOEA [None]
  - INFUSION RELATED REACTION [None]
